FAERS Safety Report 15057905 (Version 1)
Quarter: 2018Q2

REPORT INFORMATION
  Report Type: Spontaneous
  Country: US (occurrence: US)
  Receive Date: 20180625
  Receipt Date: 20180625
  Transmission Date: 20180711
  Serious: No
  Sender: FDA-Public Use
  Company Number: US-GLENMARK PHARMACEUTICALS-2018GMK033796

PATIENT

DRUGS (1)
  1. MUPIROCIN. [Suspect]
     Active Substance: MUPIROCIN
     Indication: SINUSITIS
     Dosage: UNK
     Route: 045

REACTIONS (4)
  - Wrong technique in product usage process [Unknown]
  - Incorrect route of drug administration [Unknown]
  - Product use in unapproved indication [Unknown]
  - Nasal discomfort [Unknown]
